FAERS Safety Report 7616691-8 (Version None)
Quarter: 2011Q3

REPORT INFORMATION
  Report Type: 
  Country: None (occurrence: None)
  Receive Date: 20110717
  Receipt Date: 20110711
  Transmission Date: 20111222
  Serious: Yes (Hospitalization)
  Sender: FDA-Public Use
  Company Number: PHHY2011US61637

PATIENT
  Age: 20 Year
  Sex: Male

DRUGS (2)
  1. PULMOZYME [Concomitant]
  2. TOBI [Suspect]
     Dosage: 300 MG, TWICE A DAY EVERY OTHER MONTH
     Dates: start: 20071219

REACTIONS (1)
  - UPPER RESPIRATORY TRACT INFECTION [None]
